FAERS Safety Report 17393112 (Version 1)
Quarter: 2020Q1

REPORT INFORMATION
  Report Type: Spontaneous
  Country: IT (occurrence: IT)
  Receive Date: 20200207
  Receipt Date: 20200207
  Transmission Date: 20200409
  Serious: Yes (Other)
  Sender: FDA-Public Use
  Company Number: IT-ASTRAZENECA-2020SE14515

PATIENT
  Age: 65 Year
  Sex: Male

DRUGS (15)
  1. RANEXA [Concomitant]
     Active Substance: RANOLAZINE
  2. VYTORIN [Concomitant]
     Active Substance: EZETIMIBE\SIMVASTATIN
     Dosage: 10 MG/10 MG
  3. PANTORC [Concomitant]
     Active Substance: PANTOPRAZOLE SODIUM
  4. FORXIGA [Suspect]
     Active Substance: DAPAGLIFLOZIN
     Indication: DIABETES MELLITUS
     Route: 048
     Dates: start: 20200107, end: 20200112
  5. LANTUS [Concomitant]
     Active Substance: INSULIN GLARGINE
  6. ALLOPURINOLO [Concomitant]
     Active Substance: ALLOPURINOL
  7. FUROSEMIDE. [Concomitant]
     Active Substance: FUROSEMIDE
  8. LUVION [Concomitant]
  9. CARDIOASPIRIN [Concomitant]
     Active Substance: ASPIRIN
  10. COUMADIN [Concomitant]
     Active Substance: WARFARIN SODIUM
  11. ENTRESTO [Concomitant]
     Active Substance: SACUBITRIL\VALSARTAN
  12. CARDICOR [Concomitant]
     Active Substance: BISOPROLOL
  13. KCL-RETARD [Concomitant]
     Active Substance: POTASSIUM CHLORIDE
  14. METFORMIN [Concomitant]
     Active Substance: METFORMIN HYDROCHLORIDE
  15. SEACOR [Concomitant]
     Active Substance: OMEGA-3 FATTY ACIDS

REACTIONS (3)
  - Hyperglycaemia [Not Recovered/Not Resolved]
  - Tachycardia [Not Recovered/Not Resolved]
  - Urinary tract infection [Not Recovered/Not Resolved]

NARRATIVE: CASE EVENT DATE: 20200108
